FAERS Safety Report 25959178 (Version 1)
Quarter: 2025Q4

REPORT INFORMATION
  Report Type: Report from Study
  Country: BR (occurrence: BR)
  Receive Date: 20251025
  Receipt Date: 20251025
  Transmission Date: 20260118
  Serious: Yes (Other)
  Sender: CELLTRION
  Company Number: BR-CELLTRION INC.-2025BR037191

PATIENT

DRUGS (5)
  1. INFLIXIMAB-DYYB [Suspect]
     Active Substance: INFLIXIMAB-DYYB
     Indication: Ankylosing spondylitis
     Dosage: 3 AMPOULES EVERY 2 MONTHS
     Route: 042
     Dates: start: 20240730
  2. INFLIXIMAB-DYYB [Suspect]
     Active Substance: INFLIXIMAB-DYYB
     Dosage: 3 VIALS EVERY 2 MONTHS
     Route: 042
     Dates: start: 20250529
  3. INFLIXIMAB-DYYB [Suspect]
     Active Substance: INFLIXIMAB-DYYB
     Dosage: 3 VIALS EVERY 2 MONTHS
     Route: 042
     Dates: start: 20250724
  4. CECI [Concomitant]
     Indication: Hormone replacement therapy
     Dosage: 1 TABLET DAILY
     Route: 065
     Dates: start: 20251011
  5. VITAMIN D NOS [Concomitant]
     Active Substance: CHOLECALCIFEROL\ERGOCALCIFEROL
     Indication: Vitamin supplementation
     Dosage: 2 TABLETS PER WEEK
     Route: 065
     Dates: start: 2023

REACTIONS (7)
  - Erythema [Unknown]
  - Dyspnoea [Unknown]
  - Feeling hot [Unknown]
  - Renal pain [Unknown]
  - Influenza [Unknown]
  - Abdominal pain [Unknown]
  - Intentional dose omission [Unknown]

NARRATIVE: CASE EVENT DATE: 20250529
